FAERS Safety Report 7046358-9 (Version None)
Quarter: 2010Q4

REPORT INFORMATION
  Report Type: 
  Country: None (occurrence: None)
  Receive Date: 20101014
  Receipt Date: 20101001
  Transmission Date: 20110411
  Serious: Yes (Hospitalization)
  Sender: FDA-Public Use
  Company Number: DK-GENENTECH-304104

PATIENT
  Age: 64 Year
  Sex: Male
  Weight: 67 kg

DRUGS (3)
  1. RITUXIMAB [Suspect]
     Indication: CHRONIC LYMPHOCYTIC LEUKAEMIA
     Dosage: 675 UNK, UNK
     Route: 042
     Dates: start: 20100505
  2. FLUDARABINE [Suspect]
     Indication: CHRONIC LYMPHOCYTIC LEUKAEMIA
     Dosage: 45 UNK, UNK
     Route: 042
     Dates: start: 20100506
  3. CYCLOPHOSPHAMIDE [Suspect]
     Indication: CHRONIC LYMPHOCYTIC LEUKAEMIA
     Dosage: 450 UNK, UNK
     Route: 042
     Dates: start: 20100506

REACTIONS (1)
  - FEBRILE NEUTROPENIA [None]
